FAERS Safety Report 13902369 (Version 1)
Quarter: 2017Q3

REPORT INFORMATION
  Report Type: Spontaneous
  Country: SE (occurrence: SE)
  Receive Date: 20170824
  Receipt Date: 20170824
  Transmission Date: 20171127
  Serious: Yes (Other)
  Sender: FDA-Public Use
  Company Number: SE-009507513-1708SWE009337

PATIENT

DRUGS (2)
  1. SERTRALINE HYDROCHLORIDE. [Suspect]
     Active Substance: SERTRALINE HYDROCHLORIDE
     Dosage: 50 MG, ONCE PER DAY
  2. MIRTAZAPINE. [Suspect]
     Active Substance: MIRTAZAPINE
     Dosage: 7.5-15 MG AT NIGHT
     Route: 048

REACTIONS (3)
  - Vascular graft complication [Not Recovered/Not Resolved]
  - Oropharyngeal squamous cell carcinoma [Unknown]
  - Thrombosis [Unknown]
